FAERS Safety Report 9814322 (Version 3)
Quarter: 2014Q1

REPORT INFORMATION
  Report Type: Report from Study
  Country: AU (occurrence: AU)
  Receive Date: 20140113
  Receipt Date: 20140309
  Transmission Date: 20141002
  Serious: Yes (Other)
  Sender: FDA-Public Use
  Company Number: PHHY2013AU151747

PATIENT
  Age: 76 Year
  Sex: Female

DRUGS (6)
  1. ACLASTA [Suspect]
     Indication: OSTEOPOROSIS
     Dosage: 5 MG, UNK
     Route: 042
     Dates: start: 20100930
  2. ACLASTA [Suspect]
     Dosage: 5 MG, UNK
     Route: 042
     Dates: start: 20111020
  3. ACLASTA [Suspect]
     Dosage: 5 MG, UNK
     Route: 042
     Dates: start: 20121220
  4. HIPREX [Concomitant]
     Indication: URINARY TRACT DISORDER
     Dosage: 1 DF, BID
  5. PANADOL OSTEO [Concomitant]
     Indication: PAIN
     Dosage: 2 DF, TID
  6. VAGIFEM [Concomitant]
     Dosage: 1 DF, BIW

REACTIONS (9)
  - Tibia fracture [Recovered/Resolved]
  - Urinary tract infection [Unknown]
  - Sciatica [Recovered/Resolved]
  - Spinal column stenosis [Recovered/Resolved]
  - Blood bicarbonate increased [Not Recovered/Not Resolved]
  - Globulins decreased [Not Recovered/Not Resolved]
  - Blood cholesterol increased [Not Recovered/Not Resolved]
  - Low density lipoprotein increased [Not Recovered/Not Resolved]
  - Vitamin D decreased [Not Recovered/Not Resolved]
